FAERS Safety Report 25662290 (Version 2)
Quarter: 2025Q4

REPORT INFORMATION
  Report Type: Spontaneous
  Country: EU (occurrence: EU)
  Receive Date: 20250810
  Receipt Date: 20251006
  Transmission Date: 20260117
  Serious: Yes (Hospitalization, Other)
  Sender: UCB
  Company Number: None

PATIENT
  Age: 21 Year
  Sex: Female
  Weight: 38 kg

DRUGS (6)
  1. KEPPRA [Interacting]
     Active Substance: LEVETIRACETAM
     Indication: Epileptic encephalopathy
     Dosage: 1500 MILLIGRAM, 2X/DAY (BID)
     Route: 048
  2. TEGRETOL [Interacting]
     Active Substance: CARBAMAZEPINE
     Indication: Epileptic encephalopathy
     Dosage: UNK
     Route: 048
  3. CENOBAMATE [Suspect]
     Active Substance: CENOBAMATE
     Indication: Epileptic encephalopathy
     Dosage: 75 MILLIGRAM, DAILY
     Route: 048
     Dates: start: 202405, end: 202407
  4. RIVOTRIL [Concomitant]
     Active Substance: CLONAZEPAM
     Indication: Product used for unknown indication
     Dosage: UNK
     Route: 048
  5. PHENOBARBITAL SODIUM [Concomitant]
     Active Substance: PHENOBARBITAL SODIUM
     Indication: Epileptic encephalopathy
     Dosage: UNK
     Route: 048
  6. CANNABIDIOL [Concomitant]
     Active Substance: CANNABIDIOL
     Indication: Epileptic encephalopathy
     Dosage: UNK
     Route: 048

REACTIONS (4)
  - Vomiting [Not Recovered/Not Resolved]
  - Gastrooesophageal reflux disease [Recovering/Resolving]
  - Oesophagitis [Recovering/Resolving]
  - Drug interaction [Recovering/Resolving]

NARRATIVE: CASE EVENT DATE: 20240701
